FAERS Safety Report 6180746-8 (Version None)
Quarter: 2009Q2

REPORT INFORMATION
  Report Type: 
  Country: None (occurrence: None)
  Receive Date: 20090506
  Receipt Date: 20090424
  Transmission Date: 20091009
  Serious: Yes (Hospitalization, Other)
  Sender: FDA-Public Use
  Company Number: BR-PFIZER INC-2007104904

PATIENT

DRUGS (4)
  1. MANSIL [Suspect]
     Indication: HELMINTHIC INFECTION
     Route: 048
     Dates: start: 20071201, end: 20071201
  2. MANSIL [Suspect]
     Indication: DYSPHAGIA
  3. FLANAX [Concomitant]
  4. CEFALEXIN [Concomitant]

REACTIONS (6)
  - ABDOMINAL PAIN [None]
  - CHEST PAIN [None]
  - HEADACHE [None]
  - NEOPLASM [None]
  - SKIN LESION [None]
  - VARICOSE VEIN OPERATION [None]
